FAERS Safety Report 15470375 (Version 1)
Quarter: 2018Q4

REPORT INFORMATION
  Report Type: Spontaneous
  Country: US (occurrence: US)
  Receive Date: 20181005
  Receipt Date: 20181005
  Transmission Date: 20190205
  Serious: No
  Sender: FDA-Public Use
  Company Number: US-IMPAX LABORATORIES, INC-2018-IPXL-02908

PATIENT
  Age: 57 Year
  Sex: Female
  Weight: 59 kg

DRUGS (2)
  1. PYRIDOSTIGMINE [Concomitant]
     Active Substance: PYRIDOSTIGMINE
     Indication: MYASTHENIA GRAVIS
     Dosage: 90 MG, AS NEEDED
     Route: 048
     Dates: start: 2014
  2. PYRIDOSTIGMINE BROMIDE. [Suspect]
     Active Substance: PYRIDOSTIGMINE BROMIDE
     Indication: MYASTHENIA GRAVIS
     Dosage: 180 MG, ONE TABLET, TWO TIMES A DAY
     Route: 048
     Dates: start: 201805

REACTIONS (5)
  - Product packaging issue [Unknown]
  - Drug ineffective [Unknown]
  - Product substitution issue [Unknown]
  - Product residue present [Unknown]
  - Product physical issue [Unknown]

NARRATIVE: CASE EVENT DATE: 201805
